FAERS Safety Report 6832392-8 (Version None)
Quarter: 2010Q3

REPORT INFORMATION
  Report Type: 
  Country: None (occurrence: None)
  Receive Date: 20100712
  Receipt Date: 20100628
  Transmission Date: 20110219
  Serious: Yes (Other)
  Sender: FDA-Public Use
  Company Number: IL-MYLANLABS-2010S1011472

PATIENT
  Age: 70 Year
  Sex: Female

DRUGS (2)
  1. ALBUTEROL [Suspect]
     Indication: ASTHMA
     Dosage: ONE DOSE
     Route: 007
  2. IPRATROPIUM BROMIDE [Concomitant]
     Indication: ASTHMA
     Route: 055

REACTIONS (3)
  - METABOLIC ACIDOSIS [None]
  - MYOCARDIAL INFARCTION [None]
  - RESPIRATORY ACIDOSIS [None]
